FAERS Safety Report 19369281 (Version 1)
Quarter: 2021Q2

REPORT INFORMATION
  Report Type: Spontaneous
  Country: US (occurrence: US)
  Receive Date: 20210603
  Receipt Date: 20210603
  Transmission Date: 20210717
  Serious: No
  Sender: FDA-Public Use
  Company Number: US-PFIZER INC-2021365962

PATIENT
  Age: 68 Year
  Sex: Female

DRUGS (1)
  1. PROTONIX [Suspect]
     Active Substance: PANTOPRAZOLE SODIUM
     Dosage: UNK

REACTIONS (6)
  - Rash [Unknown]
  - Diarrhoea [Unknown]
  - Myalgia [Unknown]
  - Muscle spasms [Unknown]
  - Pruritus [Unknown]
  - Chest discomfort [Unknown]
